FAERS Safety Report 9542521 (Version 1)
Quarter: 2013Q3

REPORT INFORMATION
  Report Type: Spontaneous
  Country: IT (occurrence: IT)
  Receive Date: 20130923
  Receipt Date: 20130923
  Transmission Date: 20140515
  Serious: Yes (Other)
  Sender: FDA-Public Use
  Company Number: IT-TEVA-432981ISR

PATIENT
  Age: 46 Year
  Sex: Female

DRUGS (4)
  1. FLUOROURACILE [Suspect]
     Dosage: 300 MG/M2 DAILY;
     Route: 042
     Dates: start: 20130514, end: 20130730
  2. OXALIPLATINO [Suspect]
     Dosage: 75 MG/M2 DAILY;
     Route: 042
     Dates: start: 20130514, end: 20130730
  3. ERBITUX [Suspect]
     Indication: COLON CANCER
     Dosage: 250 MG/M2 DAILY;
     Route: 042
     Dates: start: 20130514, end: 20130730
  4. LEDERFOLIN [Concomitant]
     Dates: start: 20130514, end: 20130730

REACTIONS (3)
  - Hyperpyrexia [Recovered/Resolved]
  - Abdominal pain [Recovered/Resolved]
  - Decreased appetite [Recovered/Resolved]
